FAERS Safety Report 19287060 (Version 1)
Quarter: 2021Q2

REPORT INFORMATION
  Report Type: Spontaneous
  Country: US (occurrence: US)
  Receive Date: 20210521
  Receipt Date: 20210521
  Transmission Date: 20210717
  Serious: No
  Sender: FDA-Public Use
  Company Number: US-RADIUS HEALTH INC.-2021US000879

PATIENT
  Sex: Female
  Weight: 141.95 kg

DRUGS (3)
  1. ENTYVIO [Concomitant]
     Active Substance: VEDOLIZUMAB
     Indication: PRODUCT USED FOR UNKNOWN INDICATION
  2. TYMLOS [Suspect]
     Active Substance: ABALOPARATIDE
     Indication: OSTEOPOROSIS
     Dosage: 80 MCG, QD
     Route: 058
  3. PROBIOTICS NOS [Concomitant]
     Active Substance: PROBIOTICS NOS
     Indication: PRODUCT USED FOR UNKNOWN INDICATION

REACTIONS (1)
  - Illness [Unknown]
